FAERS Safety Report 21896365 (Version 8)
Quarter: 2023Q2

REPORT INFORMATION
  Report Type: Report from Study
  Country: US (occurrence: US)
  Receive Date: 20230123
  Receipt Date: 20230614
  Transmission Date: 20230722
  Serious: Yes (Other)
  Sender: FDA-Public Use
  Company Number: US-002147023-NVSC2023US011336

PATIENT
  Age: 79 Year
  Sex: Female

DRUGS (2)
  1. ENTRESTO [Suspect]
     Active Substance: SACUBITRIL\VALSARTAN
     Indication: Product used for unknown indication
     Dosage: 100 MG, BID, (49/51 MG: SACUBITRIL 48.6MG, VALSARTAN 51.4MG)
     Route: 048
     Dates: start: 202211
  2. OXYGEN [Suspect]
     Active Substance: OXYGEN
     Indication: Product used for unknown indication
     Dosage: UNK
     Route: 065

REACTIONS (25)
  - Atrial fibrillation [Unknown]
  - Haematochezia [Unknown]
  - Chronic obstructive pulmonary disease [Recovering/Resolving]
  - Oxygen saturation decreased [Recovering/Resolving]
  - Heart rate decreased [Unknown]
  - Dyspnoea [Unknown]
  - Dysphonia [Unknown]
  - Decreased immune responsiveness [Unknown]
  - Dry throat [Unknown]
  - Memory impairment [Recovering/Resolving]
  - Weight decreased [Unknown]
  - Arthralgia [Unknown]
  - Eructation [Unknown]
  - Movement disorder [Unknown]
  - Heart rate irregular [Recovering/Resolving]
  - Ingrowing nail [Unknown]
  - Appetite disorder [Unknown]
  - Throat clearing [Unknown]
  - Cough [Unknown]
  - Asthenia [Unknown]
  - Productive cough [Unknown]
  - Fatigue [Unknown]
  - Hypotension [Recovering/Resolving]
  - Vertigo [Recovering/Resolving]
  - Product use issue [Unknown]

NARRATIVE: CASE EVENT DATE: 20221101
